FAERS Safety Report 18063091 (Version 2)
Quarter: 2021Q4

REPORT INFORMATION
  Report Type: Spontaneous
  Country: US (occurrence: US)
  Receive Date: 20200723
  Receipt Date: 20211104
  Transmission Date: 20220303
  Serious: Yes (Other)
  Sender: FDA-Public Use
  Company Number: US-GILEAD-2020-0484428

PATIENT
  Age: 54 Year
  Sex: Female
  Weight: 109.75 kg

DRUGS (39)
  1. COMPLERA [Suspect]
     Active Substance: EMTRICITABINE\RILPIVIRINE HYDROCHLORIDE\TENOFOVIR DISOPROXIL FUMARATE
     Indication: HIV infection
     Dosage: UNK
     Route: 065
     Dates: start: 20140109, end: 20140409
  2. COMPLERA [Suspect]
     Active Substance: EMTRICITABINE\RILPIVIRINE HYDROCHLORIDE\TENOFOVIR DISOPROXIL FUMARATE
     Dosage: UNK
     Route: 065
     Dates: start: 20140506, end: 20150316
  3. COMPLERA [Suspect]
     Active Substance: EMTRICITABINE\RILPIVIRINE HYDROCHLORIDE\TENOFOVIR DISOPROXIL FUMARATE
     Dosage: UNK
     Route: 065
     Dates: start: 20150812, end: 20151111
  4. COMPLERA [Suspect]
     Active Substance: EMTRICITABINE\RILPIVIRINE HYDROCHLORIDE\TENOFOVIR DISOPROXIL FUMARATE
     Dosage: UNK
     Route: 065
     Dates: start: 20151209, end: 20160804
  5. COMPLERA [Suspect]
     Active Substance: EMTRICITABINE\RILPIVIRINE HYDROCHLORIDE\TENOFOVIR DISOPROXIL FUMARATE
     Dosage: UNK
     Route: 065
     Dates: start: 20160907, end: 20170104
  6. COMPLERA [Suspect]
     Active Substance: EMTRICITABINE\RILPIVIRINE HYDROCHLORIDE\TENOFOVIR DISOPROXIL FUMARATE
     Dosage: UNK
     Route: 048
     Dates: start: 20170206, end: 20170708
  7. COMPLERA [Suspect]
     Active Substance: EMTRICITABINE\RILPIVIRINE HYDROCHLORIDE\TENOFOVIR DISOPROXIL FUMARATE
     Dosage: UNK
     Route: 065
     Dates: start: 20170831, end: 201904
  8. COMPLERA [Suspect]
     Active Substance: EMTRICITABINE\RILPIVIRINE HYDROCHLORIDE\TENOFOVIR DISOPROXIL FUMARATE
     Dosage: UNK
     Route: 065
     Dates: start: 20170831, end: 20190508
  9. BIKTARVY [Concomitant]
     Active Substance: BICTEGRAVIR SODIUM\EMTRICITABINE\TENOFOVIR ALAFENAMIDE FUMARATE
  10. ASPIRIN [Concomitant]
     Active Substance: ASPIRIN
  11. ATORVASTATIN [Concomitant]
     Active Substance: ATORVASTATIN
  12. AZITHROMYCIN [Concomitant]
     Active Substance: AZITHROMYCIN
  13. BENZONATATE [Concomitant]
     Active Substance: BENZONATATE
  14. BUPROPION [Concomitant]
     Active Substance: BUPROPION
  15. BUSPIRONE [Concomitant]
     Active Substance: BUSPIRONE HYDROCHLORIDE
  16. CEPHALEXIN HYDROCHLORIDE [Concomitant]
     Active Substance: CEPHALEXIN HYDROCHLORIDE
  17. CIPROFLOXACIN [Concomitant]
     Active Substance: CIPROFLOXACIN
  18. CLINDAMYCIN [Concomitant]
     Active Substance: CLINDAMYCIN
  19. DIAZEPAM [Concomitant]
     Active Substance: DIAZEPAM
  20. ETODOLAC [Concomitant]
     Active Substance: ETODOLAC
  21. FLUCONAZOLE [Concomitant]
     Active Substance: FLUCONAZOLE
  22. FOLIC ACID [Concomitant]
     Active Substance: FOLIC ACID
  23. GAVILYTE - C [Concomitant]
     Active Substance: POLYETHYLENE GLYCOL 3350\POTASSIUM CHLORIDE\SODIUM BICARBONATE\SODIUM CHLORIDE\SODIUM SULFATE
  24. HYDROCHLOROTHIAZIDE [Concomitant]
     Active Substance: HYDROCHLOROTHIAZIDE
  25. IBUPROFEN [Concomitant]
     Active Substance: IBUPROFEN
  26. ACETAMINOPHEN [Concomitant]
     Active Substance: ACETAMINOPHEN
  27. LIDOCAINE [Concomitant]
     Active Substance: LIDOCAINE
  28. LISINOPRIL [Concomitant]
     Active Substance: LISINOPRIL
  29. METRONIDAZOLE [Concomitant]
     Active Substance: METRONIDAZOLE
  30. NALTREXONE [Concomitant]
     Active Substance: NALTREXONE
  31. NAPROXEN [Concomitant]
     Active Substance: NAPROXEN
  32. NITROFURANTOIN [Concomitant]
     Active Substance: NITROFURANTOIN
  33. RANITIDINE [Concomitant]
     Active Substance: RANITIDINE
  34. RISPERIDONE [Concomitant]
     Active Substance: RISPERIDONE
  35. TRAMADOL [Concomitant]
     Active Substance: TRAMADOL
  36. VITAMIN D NOS [Concomitant]
     Active Substance: VITAMIN D NOS
  37. AMLODIPINE [Concomitant]
     Active Substance: AMLODIPINE BESYLATE
  38. ARIPIPRAZOLE [Concomitant]
     Active Substance: ARIPIPRAZOLE
  39. FLUTICASONE [Concomitant]
     Active Substance: FLUTICASONE

REACTIONS (9)
  - Fracture [Not Recovered/Not Resolved]
  - Bone disorder [Unknown]
  - Anxiety [Not Recovered/Not Resolved]
  - Bone density decreased [Not Recovered/Not Resolved]
  - Degenerative bone disease [Unknown]
  - Pain [Not Recovered/Not Resolved]
  - Emotional distress [Not Recovered/Not Resolved]
  - Mobility decreased [Unknown]
  - Depression [Not Recovered/Not Resolved]

NARRATIVE: CASE EVENT DATE: 20140101
